FAERS Safety Report 9951025 (Version 2)
Quarter: 2014Q1

REPORT INFORMATION
  Report Type: Report from Study
  Country: US (occurrence: US)
  Receive Date: 20140304
  Receipt Date: 20140304
  Transmission Date: 20141002
  Serious: No
  Sender: FDA-Public Use
  Company Number: US-ABBVIE-13P-163-1057846-00

PATIENT
  Sex: Male
  Weight: 122.58 kg

DRUGS (14)
  1. HUMIRA [Suspect]
     Indication: PSORIATIC ARTHROPATHY
     Route: 058
     Dates: start: 2007, end: 201204
  2. HUMIRA [Suspect]
     Dates: start: 20130326
  3. GABAPENTIN [Concomitant]
     Indication: NEURALGIA
  4. MVI [Concomitant]
     Indication: VITAMIN SUPPLEMENTATION
  5. PERCOCET [Concomitant]
     Indication: BACK PAIN
  6. VIAGRA [Concomitant]
     Indication: PRODUCT USED FOR UNKNOWN INDICATION
  7. TOPOMAX [Concomitant]
     Indication: MIGRAINE PROPHYLAXIS
  8. CRESTOR [Concomitant]
     Indication: BLOOD CHOLESTEROL INCREASED
  9. OXYCODONE [Concomitant]
     Indication: PAIN
  10. OMEGA 3 [Concomitant]
     Indication: NUTRITIONAL SUPPLEMENTATION
  11. XANAX [Concomitant]
     Indication: ANXIETY
  12. CYCLOBENZAPRINE [Concomitant]
     Indication: MUSCLE SPASMS
  13. METHOTREXATE [Concomitant]
     Indication: PSORIATIC ARTHROPATHY
     Dates: start: 201205, end: 2013
  14. ENBREL [Concomitant]
     Indication: PSORIATIC ARTHROPATHY
     Dates: start: 201209, end: 201210

REACTIONS (2)
  - Abscess [Not Recovered/Not Resolved]
  - Groin abscess [Recovering/Resolving]
